FAERS Safety Report 10079799 (Version 1)
Quarter: 2014Q2

REPORT INFORMATION
  Report Type: Spontaneous
  Country: RU (occurrence: RU)
  Receive Date: 20140415
  Receipt Date: 20140415
  Transmission Date: 20141212
  Serious: Yes (Hospitalization)
  Sender: FDA-Public Use
  Company Number: RU-VIIV HEALTHCARE LIMITED-B0985728A

PATIENT
  Age: 39 Year
  Sex: Female

DRUGS (2)
  1. COMBIVIR [Suspect]
     Indication: PRODUCT USED FOR UNKNOWN INDICATION
     Route: 048
  2. STOCRIN [Suspect]
     Indication: PRODUCT USED FOR UNKNOWN INDICATION
     Route: 048

REACTIONS (5)
  - Rash [Unknown]
  - Body temperature increased [Unknown]
  - Pruritus [Unknown]
  - Nasal congestion [Unknown]
  - Nasal oedema [Unknown]
